FAERS Safety Report 7091378-1 (Version None)
Quarter: 2010Q4

REPORT INFORMATION
  Report Type: 
  Country: None (occurrence: None)
  Receive Date: 20101109
  Receipt Date: 20101102
  Transmission Date: 20110411
  Serious: Yes (Other)
  Sender: FDA-Public Use
  Company Number: A0890437A

PATIENT
  Sex: Female

DRUGS (2)
  1. PAXIL CR [Suspect]
     Indication: DEPRESSION
     Route: 048
     Dates: start: 20050301, end: 20050101
  2. NO CONCURRENT MEDICATION [Concomitant]

REACTIONS (7)
  - ALOPECIA [None]
  - FEELING COLD [None]
  - HYPERHIDROSIS [None]
  - PHARYNGEAL DISORDER [None]
  - SUICIDAL IDEATION [None]
  - TOOTH LOSS [None]
  - WEIGHT DECREASED [None]
